FAERS Safety Report 14501846 (Version 1)
Quarter: 2018Q1

REPORT INFORMATION
  Report Type: Spontaneous
  Country: US (occurrence: US)
  Receive Date: 20180207
  Receipt Date: 20180207
  Transmission Date: 20180509
  Serious: No
  Sender: FDA-Public Use
  Company Number: US-AMGEN-USASP2018015854

PATIENT
  Age: 66 Year
  Sex: Female

DRUGS (2)
  1. NAPROSYN [Concomitant]
     Active Substance: NAPROXEN
     Dosage: UNK
  2. ENBREL [Suspect]
     Active Substance: ETANERCEPT
     Indication: RHEUMATOID ARTHRITIS
     Dosage: 50 MG, QWK
     Route: 065

REACTIONS (4)
  - Adverse reaction [Unknown]
  - Osteoporosis [Not Recovered/Not Resolved]
  - Neck pain [Unknown]
  - Hypertension [Unknown]
